FAERS Safety Report 14763784 (Version 1)
Quarter: 2018Q2

REPORT INFORMATION
  Report Type: Spontaneous
  Country: US (occurrence: US)
  Receive Date: 20180416
  Receipt Date: 20180416
  Transmission Date: 20180711
  Serious: Yes (Other)
  Sender: FDA-Public Use
  Company Number: US-MYLANLABS-2018M1023620

PATIENT
  Age: 45 Year
  Sex: Male

DRUGS (1)
  1. HEPARIN [Suspect]
     Active Substance: HEPARIN SODIUM
     Indication: ANTICOAGULANT THERAPY
     Route: 065

REACTIONS (6)
  - Pulmonary embolism [Unknown]
  - Embolic stroke [Unknown]
  - Cyanosis [Unknown]
  - Splenic infarction [Unknown]
  - Heparin-induced thrombocytopenia [Unknown]
  - Thrombosis [Unknown]
